FAERS Safety Report 22008401 (Version 1)
Quarter: 2023Q1

REPORT INFORMATION
  Report Type: Spontaneous
  Country: US (occurrence: US)
  Receive Date: 20230219
  Receipt Date: 20230219
  Transmission Date: 20230418
  Serious: Yes (Death)
  Sender: FDA-Public Use
  Company Number: US-SPECGX-T202300152

PATIENT
  Age: 8 Month
  Sex: Female

DRUGS (1)
  1. FENTANYL CITRATE [Suspect]
     Active Substance: FENTANYL CITRATE
     Indication: Product used for unknown indication
     Dosage: UNK
     Route: 048

REACTIONS (7)
  - Unresponsive to stimuli [Fatal]
  - COVID-19 [Fatal]
  - Brain herniation [Fatal]
  - Brain death [Fatal]
  - Cardio-respiratory arrest [Fatal]
  - Drug screen positive [Fatal]
  - Accidental exposure to product by child [Fatal]

NARRATIVE: CASE EVENT DATE: 20210101
